FAERS Safety Report 12648678 (Version 1)
Quarter: 2016Q3

REPORT INFORMATION
  Report Type: Report from Study
  Country: BR (occurrence: BR)
  Receive Date: 20160812
  Receipt Date: 20160812
  Transmission Date: 20161109
  Serious: Yes (Death, Hospitalization, Other)
  Sender: FDA-Public Use
  Company Number: BR-ABBVIE-16P-020-1694669-00

PATIENT
  Sex: Female

DRUGS (2)
  1. SYNTHROID [Suspect]
     Active Substance: LEVOTHYROXINE SODIUM
     Dosage: DAILY DOSE: 75 MCG IN THE MORNING IN FASTING
     Route: 048
  2. SYNTHROID [Suspect]
     Active Substance: LEVOTHYROXINE SODIUM
     Indication: PRODUCT USED FOR UNKNOWN INDICATION
     Dosage: DAILY DOSE: 1 TABLET IN THE MORNING IN FASTING
     Route: 048

REACTIONS (9)
  - Asthenia [Unknown]
  - Vomiting [Fatal]
  - Seizure [Fatal]
  - Renal disorder [Unknown]
  - Fluid intake reduced [Unknown]
  - Nosocomial infection [Fatal]
  - Nervous system disorder [Unknown]
  - Head injury [Unknown]
  - Accident [Unknown]

NARRATIVE: CASE EVENT DATE: 2014
